FAERS Safety Report 24885137 (Version 1)
Quarter: 2025Q1

REPORT INFORMATION
  Report Type: Spontaneous
  Country: US (occurrence: US)
  Receive Date: 20250124
  Receipt Date: 20250124
  Transmission Date: 20250409
  Serious: No
  Sender: PFIZER
  Company Number: US-PFIZER INC-202500015182

PATIENT
  Age: 18 Year
  Sex: Male

DRUGS (3)
  1. CIBINQO [Suspect]
     Active Substance: ABROCITINIB
     Indication: Dermatitis atopic
  2. CIBINQO [Suspect]
     Active Substance: ABROCITINIB
  3. CIBINQO [Suspect]
     Active Substance: ABROCITINIB
     Dosage: 50 MG, 1X/DAY

REACTIONS (2)
  - Upper respiratory tract infection [Unknown]
  - Condition aggravated [Unknown]
